FAERS Safety Report 8099295-5 (Version None)
Quarter: 2012Q1

REPORT INFORMATION
  Report Type: 
  Country: None (occurrence: None)
  Receive Date: 20120129
  Receipt Date: 20111019
  Transmission Date: 20120608
  Serious: No
  Sender: FDA-Public Use
  Company Number: US-ABBOTT-11P-163-0866717-00

PATIENT
  Age: 73 Year
  Sex: Female

DRUGS (3)
  1. PREDNISONE TAB [Concomitant]
     Indication: RHEUMATOID ARTHRITIS
  2. SYNTHROID [Concomitant]
     Indication: HYPOTHYROIDISM
  3. HUMIRA [Suspect]
     Indication: RHEUMATOID ARTHRITIS
     Dates: start: 20110901

REACTIONS (1)
  - HALLUCINATION [None]
